FAERS Safety Report 23535385 (Version 1)
Quarter: 2024Q1

REPORT INFORMATION
  Report Type: Report from Study
  Country: US (occurrence: None)
  Receive Date: 20240218
  Receipt Date: 20240218
  Transmission Date: 20240409
  Serious: Yes (Other)
  Sender: FDA-Public Use
  Company Number: 2024A035685

PATIENT
  Sex: Female

DRUGS (1)
  1. LYNPARZA [Suspect]
     Active Substance: OLAPARIB
     Indication: Lung neoplasm malignant
     Route: 048
     Dates: start: 20231229

REACTIONS (3)
  - Wound [Unknown]
  - Atrial fibrillation [Unknown]
  - Speech disorder [Unknown]
